FAERS Safety Report 13834958 (Version 1)
Quarter: 2017Q3

REPORT INFORMATION
  Report Type: Other
  Country: US (occurrence: US)
  Receive Date: 20170804
  Receipt Date: 20170804
  Transmission Date: 20171127
  Serious: Yes (Hospitalization)
  Sender: FDA-Public Use
  Company Number: US-HETERO LABS LTD-2024160

PATIENT
  Age: 44 Year
  Sex: Female

DRUGS (3)
  1. TENOFOVIR [Suspect]
     Active Substance: TENOFOVIR
     Indication: HIV INFECTION
     Route: 065
  2. RITONAVIR. [Suspect]
     Active Substance: RITONAVIR
     Route: 065
  3. EMTRICITABINE [Suspect]
     Active Substance: EMTRICITABINE
     Route: 065

REACTIONS (1)
  - Myasthenia gravis [Recovered/Resolved]
